FAERS Safety Report 25479359 (Version 1)
Quarter: 2025Q2

REPORT INFORMATION
  Report Type: Spontaneous
  Country: US (occurrence: US)
  Receive Date: 20250625
  Receipt Date: 20250625
  Transmission Date: 20250717
  Serious: No
  Sender: PFIZER
  Company Number: US-PFIZER INC-202500128351

PATIENT

DRUGS (3)
  1. PROPOFOL [Suspect]
     Active Substance: PROPOFOL
     Indication: Sedative therapy
     Dosage: 1X/DAY; USUAL 200-400 MG/FOR ENDOSCOPY WAS HAVING TO USE 600- 1200 MG
     Route: 042
     Dates: start: 2025, end: 2025
  2. PROPOFOL [Suspect]
     Active Substance: PROPOFOL
     Indication: Endoscopy
  3. PROPOFOL [Suspect]
     Active Substance: PROPOFOL
     Indication: General anaesthesia

REACTIONS (1)
  - Drug ineffective [Unknown]

NARRATIVE: CASE EVENT DATE: 20250101
